FAERS Safety Report 8769891 (Version 1)
Quarter: 2012Q4

REPORT INFORMATION
  Report Type: 
  Country: ZA (occurrence: ZA)
  Receive Date: 20120906
  Receipt Date: 20120906
  Transmission Date: 20130627
  Serious: Yes (Hospitalization)
  Sender: FDA-Public Use
  Company Number: ZA-ELI_LILLY_AND_COMPANY-ZA201208009507

PATIENT
  Sex: Male

DRUGS (1)
  1. HUMALOG 25% LISPRO, 75% NPL [Suspect]
     Indication: DIABETES MELLITUS
     Dosage: 22 u, bid
     Route: 058
     Dates: start: 20120621

REACTIONS (4)
  - Hernia [Unknown]
  - Endoscopy upper gastrointestinal tract [Unknown]
  - Colonoscopy [Unknown]
  - Angiogram [Unknown]
